FAERS Safety Report 4337320-5 (Version None)
Quarter: 2004Q2

REPORT INFORMATION
  Report Type: 
  Country: None (occurrence: None)
  Receive Date: 20040408
  Receipt Date: 20040323
  Transmission Date: 20050107
  Serious: Yes (Other)
  Sender: FDA-Public Use
  Company Number: A0504038A

PATIENT
  Age: 46 Year
  Sex: Female

DRUGS (4)
  1. NICORETTE [Suspect]
     Indication: EX-SMOKER
     Dosage: 4 MG / TRANSBUCCAL
     Route: 002
     Dates: start: 20040319, end: 20040319
  2. SIMVASTATIN [Concomitant]
  3. FERROUS FUMARATE [Concomitant]
  4. SODIUM RABEPRAZOLE [Concomitant]

REACTIONS (4)
  - CHOKING [None]
  - OROPHARYNGEAL SWELLING [None]
  - SENSATION OF FOREIGN BODY [None]
  - THROAT TIGHTNESS [None]
